FAERS Safety Report 22251588 (Version 2)
Quarter: 2023Q2

REPORT INFORMATION
  Report Type: Report from Study
  Country: US (occurrence: None)
  Receive Date: 20230425
  Receipt Date: 20230501
  Transmission Date: 20230722
  Serious: Yes (Death)
  Sender: FDA-Public Use
  Company Number: 2023A015008

PATIENT
  Age: 47 Year
  Sex: Male

DRUGS (2)
  1. DURVALUMAB [Suspect]
     Active Substance: DURVALUMAB
     Indication: Neoplasm
     Route: 042
     Dates: start: 20221227
  2. OLAPARIB [Suspect]
     Active Substance: OLAPARIB
     Indication: Neoplasm
     Route: 048
     Dates: start: 20221227, end: 20230110

REACTIONS (2)
  - Thrombocytopenia [Fatal]
  - Alanine aminotransferase increased [Fatal]

NARRATIVE: CASE EVENT DATE: 20230117
